FAERS Safety Report 12922699 (Version 1)
Quarter: 2016Q4

REPORT INFORMATION
  Report Type: Spontaneous
  Country: US (occurrence: US)
  Receive Date: 20161108
  Receipt Date: 20161108
  Transmission Date: 20170207
  Serious: Yes (Hospitalization)
  Sender: FDA-Public Use
  Company Number: None

PATIENT
  Age: 72 Year
  Sex: Male
  Weight: 69.75 kg

DRUGS (6)
  1. PLAVIX [Concomitant]
     Active Substance: CLOPIDOGREL BISULFATE
  2. PLAQUENIL [Concomitant]
     Active Substance: HYDROXYCHLOROQUINE SULFATE
  3. MICARDIS [Concomitant]
     Active Substance: TELMISARTAN
  4. REPATHA [Suspect]
     Active Substance: EVOLOCUMAB
     Indication: LOW DENSITY LIPOPROTEIN INCREASED
     Dosage: QUANTITY:2 INJECTION(S);OTHER FREQUENCY:TWICE A MONTH; INTRAMUSCULAR?
     Route: 030
     Dates: start: 20160618, end: 20160626
  5. CENTRUM [Concomitant]
     Active Substance: VITAMINS
  6. CQ10 [Concomitant]
     Active Substance: UBIDECARENONE

REACTIONS (2)
  - Deafness unilateral [None]
  - Upper respiratory tract infection [None]

NARRATIVE: CASE EVENT DATE: 20160626
